FAERS Safety Report 4725524-9 (Version None)
Quarter: 2005Q3

REPORT INFORMATION
  Report Type: 
  Country: None (occurrence: None)
  Receive Date: 20050725
  Receipt Date: 20050711
  Transmission Date: 20060218
  Serious: Yes (Death)
  Sender: FDA-Public Use
  Company Number: 2005S1000154

PATIENT
  Age: 72 Year
  Sex: Female
  Weight: 74 kg

DRUGS (1)
  1. CUBICIN [Suspect]
     Indication: ENTEROCOCCAL SEPSIS
     Dosage: 500 MG; TIW; IV
     Route: 042

REACTIONS (1)
  - REFUSAL OF TREATMENT BY PATIENT [None]
